FAERS Safety Report 16191826 (Version 1)
Quarter: 2019Q2

REPORT INFORMATION
  Report Type: Spontaneous
  Country: BR (occurrence: BR)
  Receive Date: 20190412
  Receipt Date: 20190412
  Transmission Date: 20190711
  Serious: Yes (Other)
  Sender: FDA-Public Use
  Company Number: BR-NOVOPROD-656781

PATIENT
  Sex: Female
  Weight: 90 kg

DRUGS (9)
  1. GLICLAZIDE [Concomitant]
     Active Substance: GLICLAZIDE
     Indication: DIABETES MELLITUS
     Dosage: 1 TABLET, ONE MORNING AND ONE AT NIGHT
     Route: 065
  2. SINVASTATINA [Concomitant]
     Active Substance: SIMVASTATIN
     Indication: BLOOD CHOLESTEROL INCREASED
     Dosage: 1 TABLET PER DAY
     Route: 065
  3. ENALAPRIL [Concomitant]
     Active Substance: ENALAPRIL
     Indication: BLOOD PRESSURE INCREASED
     Dosage: 1 TABLET
     Route: 065
  4. ATENOLOL. [Concomitant]
     Active Substance: ATENOLOL
     Indication: COAGULOPATHY
     Dosage: 1 TABLET AT MORNING AND ONE AT NIGHT
     Route: 065
  5. NOVOLIN R [Concomitant]
     Active Substance: INSULIN HUMAN
     Dosage: UNK
     Route: 065
  6. METFORMIN [Concomitant]
     Active Substance: METFORMIN HYDROCHLORIDE
     Indication: DIABETES MELLITUS
     Dosage: 2 PER DAY, ONE IN THE MORNING AND NIGHT
     Route: 065
  7. CILOSTAZOL. [Concomitant]
     Active Substance: CILOSTAZOL
     Dosage: 1 TABLET PER DAY
     Route: 065
  8. NOVOLIN N [Suspect]
     Active Substance: INSULIN HUMAN
     Indication: TYPE 1 DIABETES MELLITUS
     Dosage: 52 IU, QD (30 IU IN THE MORNING, 25 IU AT NIGHT)
     Route: 065
     Dates: start: 201603
  9. AMITRIPTYLINE HYDROCHLORIDE. [Concomitant]
     Active Substance: AMITRIPTYLINE HYDROCHLORIDE
     Indication: ANTIDEPRESSANT THERAPY
     Dosage: 2 TABLETS 25 MG EACH- 50 MG
     Route: 065

REACTIONS (5)
  - Visual impairment [Recovered/Resolved]
  - Retinal detachment [Recovered/Resolved]
  - Visual impairment [Unknown]
  - Diabetic metabolic decompensation [Unknown]
  - Blindness unilateral [Unknown]
